FAERS Safety Report 10254061 (Version 1)
Quarter: 2014Q2

REPORT INFORMATION
  Report Type: Spontaneous
  Country: FR (occurrence: FR)
  Receive Date: 20140623
  Receipt Date: 20140623
  Transmission Date: 20141212
  Serious: Yes (Other)
  Sender: FDA-Public Use
  Company Number: FR-ABBVIE-14P-056-1248302-00

PATIENT
  Age: 27 Year
  Sex: Female
  Weight: 92 kg

DRUGS (2)
  1. HUMIRA [Suspect]
     Indication: PSORIASIS
     Route: 058
     Dates: start: 201306, end: 20130909
  2. FERVEX [Suspect]
     Indication: PRODUCT USED FOR UNKNOWN INDICATION
     Dosage: PONCTUAL INTAKE; ACIDE ASCORBIQUE, PARAC?TAMOL, PH?NIRAMINE MAL?ATE
     Route: 048
     Dates: start: 201308, end: 201308

REACTIONS (2)
  - Hepatocellular injury [Recovered/Resolved]
  - Hypergammaglobulinaemia [Unknown]
